FAERS Safety Report 8224916-3 (Version None)
Quarter: 2012Q1

REPORT INFORMATION
  Report Type: 
  Country: None (occurrence: None)
  Receive Date: 20120321
  Receipt Date: 20120312
  Transmission Date: 20120608
  Serious: Yes (Other)
  Sender: FDA-Public Use
  Company Number: US-JNJFOC-20111107414

PATIENT
  Sex: Female

DRUGS (9)
  1. NUCYNTA [Suspect]
     Dosage: 100MG 1 TABLET 4 TIMES A DAY
     Route: 048
     Dates: start: 20111016, end: 20111019
  2. OXYCODONE HCL [Concomitant]
     Indication: PAIN
     Route: 065
  3. PROZAC [Concomitant]
     Indication: DEPRESSION
     Dosage: 3 MONTHS, 1 IN AM
     Route: 048
  4. NUCYNTA [Suspect]
     Indication: PAIN MANAGEMENT
     Dosage: NOV
     Route: 048
  5. OXYCODONE HCL [Concomitant]
     Dosage: 30 MG EVERY 6-8 HRS
     Route: 065
  6. PHENERGAN [Concomitant]
     Indication: NAUSEA
     Route: 048
  7. XANAX [Concomitant]
     Indication: ANXIETY
     Route: 048
  8. SOMA [Concomitant]
     Indication: MUSCLE SPASMS
     Route: 065
  9. METHADONE HCL [Concomitant]
     Indication: PAIN
     Route: 048

REACTIONS (5)
  - TOOTH FRACTURE [None]
  - FEELING ABNORMAL [None]
  - LOSS OF CONSCIOUSNESS [None]
  - ILL-DEFINED DISORDER [None]
  - SEDATION [None]
